FAERS Safety Report 7747801-X (Version None)
Quarter: 2011Q3

REPORT INFORMATION
  Report Type: 
  Country: None (occurrence: None)
  Receive Date: 20110913
  Receipt Date: 20110909
  Transmission Date: 20111222
  Serious: Yes (Other)
  Sender: FDA-Public Use
  Company Number: AU-ROCHE-801926

PATIENT
  Sex: Female

DRUGS (6)
  1. TAXANES [Concomitant]
     Route: 065
  2. HERCEPTIN [Suspect]
     Route: 065
  3. XELODA [Suspect]
     Route: 065
  4. NAVELBINE [Concomitant]
     Route: 065
  5. GEMCITABINE [Concomitant]
     Route: 065
  6. ABRAXANE [Concomitant]
     Route: 065

REACTIONS (1)
  - DISEASE PROGRESSION [None]
